FAERS Safety Report 7389932 (Version 15)
Quarter: 2015Q1

REPORT INFORMATION
  Report Type: Spontaneous
  Country: CA (occurrence: CA)
  Receive Date: 20100517
  Receipt Date: 20150113
  Transmission Date: 20150721
  Serious: Yes (Hospitalization, Other)
  Sender: FDA-Public Use
  Company Number: CA-ROCHE-GNE301671

PATIENT
  Age: 34 Year
  Sex: Female
  Weight: 72 kg

DRUGS (12)
  1. SINGULAIR [Concomitant]
     Active Substance: MONTELUKAST SODIUM
  2. NASONEX [Concomitant]
     Active Substance: MOMETASONE FUROATE
  3. XOLAIR [Suspect]
     Active Substance: OMALIZUMAB
     Indication: ASTHMA
     Dosage: 375 MG, Q2W
     Route: 058
     Dates: start: 20090126
  4. XOLAIR [Suspect]
     Active Substance: OMALIZUMAB
     Route: 058
     Dates: start: 20100419
  5. XOLAIR [Suspect]
     Active Substance: OMALIZUMAB
     Route: 058
     Dates: start: 20150106
  6. CEFPROZIL. [Suspect]
     Active Substance: CEFPROZIL
     Indication: CELLULITIS
     Route: 065
     Dates: start: 20140613
  7. METHADONE [Concomitant]
     Active Substance: METHADONE HYDROCHLORIDE
  8. PAXIL (CANADA) [Concomitant]
  9. PREDNISOLONE. [Concomitant]
     Active Substance: PREDNISOLONE
     Dosage: 30 MG TWICE A DAY
     Route: 065
  10. XOLAIR [Suspect]
     Active Substance: OMALIZUMAB
     Route: 058
     Dates: start: 20090406
  11. VENTOLIN [Concomitant]
     Active Substance: ALBUTEROL SULFATE
  12. ADVAIR HFA [Concomitant]
     Active Substance: FLUTICASONE PROPIONATE\SALMETEROL XINAFOATE

REACTIONS (24)
  - Fall [Unknown]
  - Pain [Unknown]
  - Dyspnoea [Unknown]
  - Movement disorder [Unknown]
  - Pyrexia [Unknown]
  - Localised infection [Unknown]
  - Rash pustular [Unknown]
  - Diabetes mellitus [Unknown]
  - Drug intolerance [Unknown]
  - Blood cortisol decreased [Unknown]
  - Respiratory disorder [Unknown]
  - Adrenal insufficiency [Unknown]
  - Asthenia [Unknown]
  - Respiratory rate increased [Unknown]
  - Cellulitis [Unknown]
  - Hypersensitivity [Unknown]
  - Wound [Unknown]
  - Skin necrosis [Unknown]
  - Nausea [Unknown]
  - Sleep apnoea syndrome [Unknown]
  - Generalised erythema [Unknown]
  - Joint swelling [Unknown]
  - Myalgia [Unknown]
  - Weight increased [Unknown]

NARRATIVE: CASE EVENT DATE: 201004
